FAERS Safety Report 5201845-0 (Version None)
Quarter: 2007Q1

REPORT INFORMATION
  Report Type: 
  Country: None (occurrence: None)
  Receive Date: 20070104
  Receipt Date: 20061228
  Transmission Date: 20070707
  Serious: Yes (Death)
  Sender: FDA-Public Use
  Company Number: 2006SP008790

PATIENT
  Age: 63 Year
  Sex: Female
  Weight: 59 kg

DRUGS (5)
  1. TEMODAL [Suspect]
     Indication: GLIOBLASTOMA MULTIFORME
     Dosage: 100 MG; QD; PO
     Route: 048
     Dates: start: 20061004, end: 20061114
  2. RADIOTHERAPY [Concomitant]
  3. NAUZELIN [Concomitant]
  4. PRIMPERAN [Concomitant]
  5. NASEA [Concomitant]

REACTIONS (9)
  - CONTUSION [None]
  - FALL [None]
  - FATIGUE [None]
  - GENERAL PHYSICAL HEALTH DETERIORATION [None]
  - HEAD INJURY [None]
  - NAUSEA [None]
  - PLATELET COUNT DECREASED [None]
  - SEPTIC SHOCK [None]
  - WHITE BLOOD CELL COUNT DECREASED [None]
